FAERS Safety Report 5499815-0 (Version None)
Quarter: 2007Q4

REPORT INFORMATION
  Report Type: 
  Country: None (occurrence: None)
  Receive Date: 20071026
  Receipt Date: 20071015
  Transmission Date: 20080405
  Serious: Yes (Other)
  Sender: FDA-Public Use
  Company Number: GB-PFIZER INC-2007075240

PATIENT
  Sex: Male
  Weight: 73 kg

DRUGS (12)
  1. CHAMPIX [Suspect]
     Route: 048
     Dates: start: 20070820, end: 20070910
  2. SALBUTAMOL [Concomitant]
     Route: 048
  3. THEOPHYLLINE [Concomitant]
     Route: 048
  4. ADCAL-D3 [Concomitant]
     Route: 048
  5. DILTIAZEM [Concomitant]
     Route: 048
  6. CITALOPRAM HYDROBROMIDE [Concomitant]
     Route: 048
  7. TIOTROPIUM [Concomitant]
     Route: 055
  8. OMEPRAZOLE [Concomitant]
     Route: 048
  9. PREDNISOLONE [Concomitant]
     Route: 048
  10. ALENDRONIC ACID [Concomitant]
     Route: 048
  11. RAMIPRIL [Concomitant]
     Route: 048
  12. ALL OTHER THERAPEUTIC PRODUCTS [Concomitant]
     Route: 055

REACTIONS (5)
  - ABNORMAL DREAMS [None]
  - DISORIENTATION [None]
  - HALLUCINATION [None]
  - NAUSEA [None]
  - PAIN [None]
